FAERS Safety Report 25807545 (Version 2)
Quarter: 2025Q4

REPORT INFORMATION
  Report Type: Spontaneous
  Country: JP (occurrence: JP)
  Receive Date: 20250916
  Receipt Date: 20251020
  Transmission Date: 20260118
  Serious: Yes (Other)
  Sender: AMGEN
  Company Number: JP-AMGEN-JPNSP2025180859

PATIENT
  Age: 81 Year
  Sex: Male

DRUGS (7)
  1. IMDELLTRA [Suspect]
     Active Substance: TARLATAMAB-DLLE
     Indication: Small cell lung cancer extensive stage
     Dosage: 1 MILLIGRAM, DAY 1 CYCLE 1
     Route: 040
     Dates: start: 20250523
  2. IMDELLTRA [Suspect]
     Active Substance: TARLATAMAB-DLLE
     Dosage: 10 MILLIGRAM, DAY 8 CYCLE 1
     Route: 040
     Dates: start: 20250530
  3. IMDELLTRA [Suspect]
     Active Substance: TARLATAMAB-DLLE
     Dosage: 10 MILLIGRAM, DAY 15 CYCLE 1
     Route: 040
     Dates: start: 20250606
  4. IMDELLTRA [Suspect]
     Active Substance: TARLATAMAB-DLLE
     Dosage: 10 MILLIGRAM, DAY 29 CYCLE 2
     Route: 040
     Dates: start: 20250621
  5. IMDELLTRA [Suspect]
     Active Substance: TARLATAMAB-DLLE
     Dosage: 10 MILLIGRAM, DAY 43 CYCLE 2
     Route: 040
     Dates: start: 20250705
  6. IMDELLTRA [Suspect]
     Active Substance: TARLATAMAB-DLLE
     Dosage: 10 MILLIGRAM, DAY 57 CYCLE 2
     Route: 040
     Dates: start: 20250719, end: 2025
  7. OXYGEN [Concomitant]
     Active Substance: OXYGEN
     Dosage: 1 LITER/ MIN

REACTIONS (3)
  - Cytokine release syndrome [Recovering/Resolving]
  - Small cell lung cancer [Unknown]
  - Interstitial lung disease [Recovering/Resolving]

NARRATIVE: CASE EVENT DATE: 20250501
